FAERS Safety Report 8335062-2 (Version None)
Quarter: 2012Q2

REPORT INFORMATION
  Report Type: 
  Country: None (occurrence: None)
  Receive Date: 20120503
  Receipt Date: 20120424
  Transmission Date: 20120825
  Serious: Yes (Hospitalization)
  Sender: FDA-Public Use
  Company Number: US-JNJFOC-20120406660

PATIENT
  Sex: Male
  Weight: 86.9 kg

DRUGS (4)
  1. AZATHIOPRINE [Concomitant]
  2. MELATONIN [Concomitant]
  3. REMICADE [Suspect]
     Indication: INFLAMMATORY BOWEL DISEASE
     Route: 042
     Dates: start: 20080613
  4. IRON [Concomitant]

REACTIONS (1)
  - GASTROENTERITIS VIRAL [None]
